FAERS Safety Report 4409543-8 (Version None)
Quarter: 2004Q3

REPORT INFORMATION
  Report Type: 
  Country: None (occurrence: None)
  Receive Date: 20040723
  Receipt Date: 20040713
  Transmission Date: 20050211
  Serious: Yes (Life-Threatening, Hospitalization)
  Sender: FDA-Public Use
  Company Number: 2004-03101

PATIENT
  Age: 58 Year
  Sex: Female

DRUGS (12)
  1. HALOPERIDOL [Suspect]
     Indication: AGITATION
     Dosage: 70, 30 300, 270, 340MG DAY 1-5, INTRAVENOUS
     Route: 042
  2. LEVOFLOXACIN [Concomitant]
  3. PIPERACILLIN SODIUM W/TAZOBACTAM SODIUM (TAZOBACTAM SODIUM, PIPERAILLI [Concomitant]
  4. DOXYCYCLINE [Concomitant]
  5. MIDAZOLAM [Concomitant]
  6. MORPHINE [Concomitant]
  7. DILTIAZEM [Concomitant]
  8. ENOXAPARIN SODIUM [Concomitant]
  9. FAMOTIDINE [Concomitant]
  10. METOCLOPRAMIDE [Concomitant]
  11. HYDROXYCHLOROQUINE SULFATE [Concomitant]
  12. NICOTINE [Concomitant]

REACTIONS (1)
  - TORSADE DE POINTES [None]
